FAERS Safety Report 16207324 (Version 1)
Quarter: 2019Q2

REPORT INFORMATION
  Report Type: Spontaneous
  Country: BR (occurrence: BR)
  Receive Date: 20190417
  Receipt Date: 20190417
  Transmission Date: 20190711
  Serious: Yes (Other)
  Sender: FDA-Public Use
  Company Number: BR-BRISTOL-MYERS SQUIBB COMPANY-BMS-2019-037332

PATIENT
  Sex: Female

DRUGS (1)
  1. GLIFAGE [Suspect]
     Active Substance: METFORMIN HYDROCHLORIDE
     Indication: PRODUCT USED FOR UNKNOWN INDICATION
     Dosage: 2 DOSAGE FORM = 2 TABLETS
     Route: 048
     Dates: start: 201903

REACTIONS (4)
  - Malaise [Recovered/Resolved]
  - Abdominal pain [Unknown]
  - Abnormal faeces [Unknown]
  - Nephrolithiasis [Unknown]
